FAERS Safety Report 8023269-3 (Version None)
Quarter: 2012Q1

REPORT INFORMATION
  Report Type: 
  Country: None (occurrence: None)
  Receive Date: 20120104
  Receipt Date: 20120103
  Transmission Date: 20120608
  Serious: Yes (Disabling)
  Sender: FDA-Public Use
  Company Number: CA-BAYER-2011-111610

PATIENT
  Age: 39 Year
  Sex: Female
  Weight: 97.506 kg

DRUGS (1)
  1. YAZ [Suspect]
     Indication: POLYCYSTIC OVARIES
     Dosage: 1 DF, QD
     Route: 048
     Dates: start: 20100501, end: 20110101

REACTIONS (46)
  - BACK PAIN [None]
  - FATIGUE [None]
  - GAIT DISTURBANCE [None]
  - INSOMNIA [None]
  - RESTLESS LEGS SYNDROME [None]
  - VITAMIN B12 DEFICIENCY [None]
  - AMNESIA [None]
  - DRY SKIN [None]
  - MUSCULOSKELETAL STIFFNESS [None]
  - PRURITUS GENERALISED [None]
  - VISION BLURRED [None]
  - DIARRHOEA [None]
  - DIZZINESS [None]
  - HEADACHE [None]
  - TACHYCARDIA [None]
  - THYROID PAIN [None]
  - ABDOMINAL PAIN [None]
  - MUSCLE SPASMS [None]
  - NAUSEA [None]
  - SWOLLEN TONGUE [None]
  - TINNITUS [None]
  - WHEEZING [None]
  - ARTHRALGIA [None]
  - DISTURBANCE IN ATTENTION [None]
  - DYSPNOEA [None]
  - DYSSTASIA [None]
  - WEIGHT INCREASED [None]
  - SERUM FERRITIN INCREASED [None]
  - SPEECH DISORDER [None]
  - SWELLING FACE [None]
  - CONFUSIONAL STATE [None]
  - CONSTIPATION [None]
  - C-REACTIVE PROTEIN INCREASED [None]
  - GOITRE [None]
  - HAIR TEXTURE ABNORMAL [None]
  - HYPOAESTHESIA [None]
  - TREMOR [None]
  - ALOPECIA [None]
  - CEREBROVASCULAR ACCIDENT [None]
  - DRY MOUTH [None]
  - ASTHENIA [None]
  - HEPATIC ENZYME INCREASED [None]
  - LYMPHADENOPATHY [None]
  - OEDEMA PERIPHERAL [None]
  - PAIN IN JAW [None]
  - STOMATITIS [None]
